APPROVED DRUG PRODUCT: OXCARBAZEPINE
Active Ingredient: OXCARBAZEPINE
Strength: 150MG
Dosage Form/Route: TABLET;ORAL
Application: A211747 | Product #001
Applicant: ZYDUS WORLDWIDE DMCC
Approved: Jul 3, 2023 | RLD: No | RS: No | Type: DISCN